FAERS Safety Report 4681827-8 (Version None)
Quarter: 2005Q2

REPORT INFORMATION
  Report Type: 
  Country: None (occurrence: None)
  Receive Date: 20050602
  Receipt Date: 20050524
  Transmission Date: 20051028
  Serious: Yes (Hospitalization)
  Sender: FDA-Public Use
  Company Number: 2005-04-1542

PATIENT
  Age: 74 Year
  Sex: Male
  Weight: 70 kg

DRUGS (2)
  1. VIRAFERONPEG [Suspect]
     Indication: HEPATITIS C
     Dosage: 80 UG QW, SUBCUTANEOUS
     Route: 058
     Dates: start: 20050301, end: 20050401
  2. RIBAVIRIN [Suspect]
     Indication: HEPATITIS C
     Dosage: 1000 MG QD ORAL
     Route: 048
     Dates: start: 20050301, end: 20050401

REACTIONS (3)
  - ABDOMINAL PAIN [None]
  - BLOOD CULTURE POSITIVE [None]
  - YERSINIA BACTERAEMIA [None]
